FAERS Safety Report 11076720 (Version 7)
Quarter: 2019Q3

REPORT INFORMATION
  Report Type: Report from Study
  Country: JP (occurrence: JP)
  Receive Date: 20150429
  Receipt Date: 20190704
  Transmission Date: 20191004
  Serious: Yes (Life-Threatening, Hospitalization, Other)
  Sender: FDA-Public Use
  Company Number: JP-ACTELION-A-CH2013-85480

PATIENT
  Age: 35 Year
  Sex: Male

DRUGS (37)
  1. MIGLUSTAT CAPSULE 100 MG ROW [Interacting]
     Active Substance: MIGLUSTAT
     Dosage: 200 MG, TID
     Route: 048
     Dates: start: 20150918
  2. LOPERAMIDE HYDROCHLORIDE. [Concomitant]
     Active Substance: LOPERAMIDE HYDROCHLORIDE
  3. TRIENTINE [Concomitant]
     Active Substance: TRIENTINE
  4. ALBUMIN TANNATE [Concomitant]
     Active Substance: ALBUMIN BOVINE\TANNIC ACID
  5. ALUMINIUM SILICATE [Concomitant]
  6. CARBOCISTEINE [Concomitant]
     Active Substance: CARBOCYSTEINE
  7. LEVOCETIRIZINE [Concomitant]
     Active Substance: LEVOCETIRIZINE
  8. AMBROXOL [Concomitant]
     Active Substance: AMBROXOL
  9. ZOSYN [Interacting]
     Active Substance: PIPERACILLIN SODIUM\TAZOBACTAM SODIUM
     Indication: PNEUMONIA
     Dosage: 18 G, UNK
     Route: 042
     Dates: start: 20140315, end: 20140323
  10. ZOSYN [Interacting]
     Active Substance: PIPERACILLIN SODIUM\TAZOBACTAM SODIUM
     Dosage: 18 G, UNK
     Route: 042
     Dates: start: 20140930, end: 20141008
  11. AMBROXOL HYDROCHLORIDE [Concomitant]
     Active Substance: AMBROXOL HYDROCHLORIDE
  12. LACTOMIN [Concomitant]
     Active Substance: LACTOBACILLUS ACIDOPHILUS
  13. MIGLUSTAT CAPSULE 100 MG ROW [Interacting]
     Active Substance: MIGLUSTAT
     Dosage: 133.33 MG, TID
     Route: 048
     Dates: start: 20130201, end: 20130214
  14. MIGLUSTAT CAPSULE 100 MG ROW [Interacting]
     Active Substance: MIGLUSTAT
     Dosage: 100 MG, TID
     Route: 048
     Dates: start: 20130302, end: 20130429
  15. MIGLUSTAT CAPSULE 100 MG ROW [Interacting]
     Active Substance: MIGLUSTAT
     Dosage: 166.6 MG, TID
     Route: 048
     Dates: start: 20150624, end: 20150917
  16. ZOSYN [Interacting]
     Active Substance: PIPERACILLIN SODIUM\TAZOBACTAM SODIUM
     Dosage: 18 G, UNK
     Route: 042
     Dates: start: 20140520, end: 20140529
  17. MEROPENEM. [Interacting]
     Active Substance: MEROPENEM
     Dosage: 6 G, UNK
     Route: 042
     Dates: start: 20141109, end: 20141118
  18. CEFCAPENE PIVOXIL [Concomitant]
     Active Substance: CEFCAPENE PIVOXIL
  19. TRIHEXYPHENIDYL [Concomitant]
     Active Substance: TRIHEXYPHENIDYL
  20. MIGLUSTAT CAPSULE 100 MG ROW [Interacting]
     Active Substance: MIGLUSTAT
     Dosage: UNK MG, UNK
     Route: 048
     Dates: start: 20130118, end: 20130201
  21. MIGLUSTAT CAPSULE 100 MG ROW [Interacting]
     Active Substance: MIGLUSTAT
     Dosage: 100 MG, TID
     Route: 048
     Dates: start: 20141105, end: 20141109
  22. MIGLUSTAT CAPSULE 100 MG ROW [Interacting]
     Active Substance: MIGLUSTAT
     Dosage: 150 MG, TID
     Route: 048
     Dates: start: 20150623, end: 20150623
  23. ZOSYN [Interacting]
     Active Substance: PIPERACILLIN SODIUM\TAZOBACTAM SODIUM
     Dosage: 18 G, UNK
     Route: 042
     Dates: start: 20140907, end: 20140929
  24. CLONAZEPAM. [Concomitant]
     Active Substance: CLONAZEPAM
  25. FAMOTIDINE. [Concomitant]
     Active Substance: FAMOTIDINE
  26. MOSAPRIDE [Concomitant]
     Active Substance: MOSAPRIDE
  27. MIGLUSTAT CAPSULE 100 MG ROW [Suspect]
     Active Substance: MIGLUSTAT
     Indication: NIEMANN-PICK DISEASE
     Dosage: 166.66 MG, TID
     Route: 048
     Dates: start: 20130215, end: 20130228
  28. MIGLUSTAT CAPSULE 100 MG ROW [Interacting]
     Active Substance: MIGLUSTAT
     Dosage: UNK
     Route: 048
     Dates: start: 20130430, end: 20131009
  29. MIGLUSTAT CAPSULE 100 MG ROW [Interacting]
     Active Substance: MIGLUSTAT
     Dosage: 100 MG, TID
     Route: 048
     Dates: start: 20141215, end: 20150622
  30. ZOSYN [Interacting]
     Active Substance: PIPERACILLIN SODIUM\TAZOBACTAM SODIUM
     Dosage: 18 G, UNK
     Route: 042
     Dates: start: 20141020, end: 20141025
  31. BIFIDOBACTERIUM BIFIDUM [Concomitant]
     Active Substance: BIFIDOBACTERIUM BIFIDUM
  32. BOTULINUM TOXIN TYPE A [Concomitant]
     Active Substance: BOTULINUM TOXIN TYPE A
  33. MIGLUSTAT CAPSULE 100 MG ROW [Interacting]
     Active Substance: MIGLUSTAT
     Dosage: 100 MG, TID
     Route: 048
     Dates: start: 20131009, end: 20141023
  34. MEROPENEM. [Interacting]
     Active Substance: MEROPENEM
     Indication: PNEUMONIA
     Dosage: 6 G, UNK
     Route: 042
     Dates: start: 20141025, end: 20141104
  35. DOMPERIDONE [Concomitant]
     Active Substance: DOMPERIDONE
  36. METRONIDAZOLE. [Concomitant]
     Active Substance: METRONIDAZOLE
  37. SODIUM VALPROATE [Concomitant]
     Active Substance: VALPROATE SODIUM

REACTIONS (18)
  - White blood cell count decreased [Recovered/Resolved]
  - Platelet count decreased [Recovered/Resolved]
  - Haematochezia [Recovered/Resolved]
  - Tracheostomy [Unknown]
  - Pneumonia aspiration [Recovered/Resolved]
  - Restlessness [Recovered/Resolved]
  - Diarrhoea [Recovered/Resolved]
  - Drug interaction [Recovered/Resolved]
  - Bronchitis [Recovered/Resolved]
  - Pneumonia [Recovered/Resolved]
  - Productive cough [Recovered/Resolved]
  - Niemann-Pick disease [Unknown]
  - Hypotension [Recovered/Resolved]
  - Pyrexia [Recovered/Resolved]
  - Delirium [Recovered/Resolved]
  - Urticaria [Recovered/Resolved]
  - Dystonia [Not Recovered/Not Resolved]
  - Disease progression [Unknown]

NARRATIVE: CASE EVENT DATE: 20130228
